FAERS Safety Report 7497107-1 (Version None)
Quarter: 2011Q2

REPORT INFORMATION
  Report Type: 
  Country: None (occurrence: None)
  Receive Date: 20110523
  Receipt Date: 20110512
  Transmission Date: 20111010
  Serious: Yes (Hospitalization, Disabling, Other)
  Sender: FDA-Public Use
  Company Number: FR-CUBIST-2011S1000133

PATIENT
  Age: 79 Year
  Sex: Female
  Weight: 69 kg

DRUGS (8)
  1. MICAFUNGIN [Concomitant]
     Route: 065
     Dates: start: 20101108, end: 20101113
  2. PANTOPRAZOLE [Concomitant]
     Route: 065
     Dates: start: 20101104, end: 20101126
  3. CUBICIN [Suspect]
     Indication: ENDOCARDITIS
     Route: 065
     Dates: start: 20101102, end: 20101118
  4. TIENAM [Concomitant]
     Route: 065
     Dates: start: 20101108, end: 20101111
  5. VANCOMYCIN [Concomitant]
     Route: 065
     Dates: end: 20101103
  6. GENTAMICIN [Concomitant]
     Route: 065
  7. AMIKACIN [Concomitant]
     Route: 065
     Dates: start: 20101108
  8. RIFAMPICIN [Concomitant]
     Route: 065
     Dates: start: 20101102, end: 20101112

REACTIONS (2)
  - CHOLESTASIS [None]
  - RHABDOMYOLYSIS [None]
